FAERS Safety Report 5419285-8 (Version None)
Quarter: 2007Q3

REPORT INFORMATION
  Report Type: 
  Country: None (occurrence: None)
  Receive Date: 20070820
  Receipt Date: 20070808
  Transmission Date: 20080115
  Serious: Yes (Hospitalization)
  Sender: FDA-Public Use
  Company Number: US-JNJFOC-20070802018

PATIENT
  Age: 79 Year
  Sex: Male

DRUGS (4)
  1. REMICADE [Suspect]
     Indication: RHEUMATOID ARTHRITIS
     Route: 042
  2. COUMADIN [Concomitant]
  3. DIGOXIN [Concomitant]
  4. LEVOBID [Concomitant]

REACTIONS (7)
  - BLOOD CREATININE INCREASED [None]
  - BLOOD URINE PRESENT [None]
  - DEHYDRATION [None]
  - HYPOTENSION [None]
  - MALAISE [None]
  - PYREXIA [None]
  - VASCULITIS [None]
